FAERS Safety Report 13904174 (Version 2)
Quarter: 2017Q4

REPORT INFORMATION
  Report Type: Spontaneous
  Country: BR (occurrence: BR)
  Receive Date: 20170825
  Receipt Date: 20171010
  Transmission Date: 20180320
  Serious: Yes (Death, Hospitalization, Other)
  Sender: FDA-Public Use
  Company Number: BR-AMGEN-BRASP2017128904

PATIENT
  Age: 80 Year
  Sex: Female

DRUGS (2)
  1. ENBREL [Suspect]
     Active Substance: ETANERCEPT
     Indication: RHEUMATOID ARTHRITIS
     Dosage: 50 MG, QWK
     Route: 058
     Dates: start: 201608
  2. PREDNISOLONE. [Concomitant]
     Active Substance: PREDNISOLONE
     Indication: RHEUMATOID ARTHRITIS

REACTIONS (10)
  - Dehydration [Unknown]
  - Pulmonary embolism [Fatal]
  - Dyspnoea [Unknown]
  - Thrombosis [Unknown]
  - Syncope [Unknown]
  - Urinary tract infection [Unknown]
  - Cough [Unknown]
  - Disease recurrence [Unknown]
  - Oedema peripheral [Unknown]
  - Asthenia [Unknown]
